FAERS Safety Report 6645588-5 (Version None)
Quarter: 2010Q1

REPORT INFORMATION
  Report Type: 
  Country: None (occurrence: None)
  Receive Date: 20100319
  Receipt Date: 20100319
  Transmission Date: 20100710
  Serious: Yes (Hospitalization)
  Sender: FDA-Public Use
  Company Number: None

PATIENT
  Age: 64 Year
  Sex: Female
  Weight: 68.0396 kg

DRUGS (5)
  1. ENBREL ETANERCEPT 25 MG/VIAL AMGEN [Suspect]
     Indication: RHEUMATOID ARTHRITIS
     Dosage: 1 VIAL TWICE WEEKLY SQ
     Route: 058
     Dates: start: 20010101, end: 20100103
  2. HYZAAR [Concomitant]
  3. SINGULAIR [Concomitant]
  4. PROTONIX [Concomitant]
  5. VYTORIN [Concomitant]

REACTIONS (10)
  - BLOOD GLUCOSE INCREASED [None]
  - DYSSTASIA [None]
  - FATIGUE [None]
  - FEELING ABNORMAL [None]
  - HEADACHE [None]
  - HYPOAESTHESIA [None]
  - PAIN [None]
  - UNEVALUABLE EVENT [None]
  - VERTIGO [None]
  - VOMITING [None]
